FAERS Safety Report 6175770-5 (Version None)
Quarter: 2009Q2

REPORT INFORMATION
  Report Type: 
  Country: None (occurrence: None)
  Receive Date: 20090501
  Receipt Date: 20090421
  Transmission Date: 20091009
  Serious: Yes (Other)
  Sender: FDA-Public Use
  Company Number: US-JNJFOC-20090405328

PATIENT
  Sex: Female

DRUGS (1)
  1. TYLENOL W/ CODEINE [Suspect]
     Indication: PROCEDURAL PAIN
     Route: 065

REACTIONS (1)
  - BLINDNESS [None]
